FAERS Safety Report 9388835 (Version 2)
Quarter: 2013Q4

REPORT INFORMATION
  Report Type: Spontaneous
  Country: US (occurrence: US)
  Receive Date: 20130708
  Receipt Date: 20131014
  Transmission Date: 20140711
  Serious: No
  Sender: FDA-Public Use
  Company Number: US-009507513-1307USA003433

PATIENT
  Sex: Male
  Weight: 87.75 kg

DRUGS (3)
  1. MIRALAX [Suspect]
     Indication: IRRITABLE BOWEL SYNDROME
     Dosage: 17 G, BID
     Route: 048
     Dates: start: 201210
  2. MIRALAX [Suspect]
     Indication: MEDICAL OBSERVATION
     Dosage: 17 G, BID
     Route: 048
     Dates: start: 201302
  3. MIRALAX [Suspect]
     Indication: CONSTIPATION

REACTIONS (6)
  - Inappropriate schedule of drug administration [Unknown]
  - Overdose [Unknown]
  - Incorrect drug administration duration [Unknown]
  - Underdose [Unknown]
  - Off label use [Unknown]
  - Product packaging quantity issue [Unknown]
